FAERS Safety Report 9785692 (Version 3)
Quarter: 2014Q2

REPORT INFORMATION
  Report Type: Spontaneous
  Country: US (occurrence: US)
  Receive Date: 20131227
  Receipt Date: 20140520
  Transmission Date: 20141212
  Serious: Yes (Hospitalization, Other)
  Sender: FDA-Public Use
  Company Number: US-BAYER-2013-156469

PATIENT
  Age: 26 Year
  Sex: Female
  Weight: 68.03 kg

DRUGS (3)
  1. MIRENA [Suspect]
     Indication: CONTRACEPTION
     Dosage: 20 MCG/24HR, CONT
     Route: 015
     Dates: start: 20100614, end: 201103
  2. METRONIDAZOLE [Concomitant]
  3. CEFOXITIN [Concomitant]

REACTIONS (12)
  - Uterine perforation [None]
  - Abortion spontaneous [None]
  - Abdominal pain upper [None]
  - Scar [None]
  - Pyrexia [None]
  - Tremor [None]
  - Injury [None]
  - Pain [None]
  - Emotional distress [None]
  - Depression [None]
  - Dyspareunia [None]
  - Psychological trauma [None]
